FAERS Safety Report 11742526 (Version 1)
Quarter: 2015Q4

REPORT INFORMATION
  Report Type: Spontaneous
  Country: US (occurrence: US)
  Receive Date: 20151116
  Receipt Date: 20151116
  Transmission Date: 20160304
  Serious: No
  Sender: FDA-Public Use
  Company Number: US-ACTELION PHARMACEUTICALS US, INC.-A-US2011-57148

PATIENT
  Age: 75 Year
  Sex: Female

DRUGS (5)
  1. TRACLEER [Suspect]
     Active Substance: BOSENTAN
     Indication: PULMONARY ARTERIAL HYPERTENSION
     Dosage: UNK
     Route: 048
  2. TRACLEER [Suspect]
     Active Substance: BOSENTAN
     Dosage: UNK
     Route: 048
  3. TYVASO [Concomitant]
     Active Substance: TREPROSTINIL
  4. REVATIO [Concomitant]
     Active Substance: SILDENAFIL CITRATE
  5. OXYGEN. [Concomitant]
     Active Substance: OXYGEN

REACTIONS (21)
  - Tonsillar cyst [Unknown]
  - Cough [Unknown]
  - Feeling abnormal [Unknown]
  - Chest pain [Unknown]
  - Swelling [Unknown]
  - Decreased appetite [Unknown]
  - Oedema [Unknown]
  - Condition aggravated [Unknown]
  - Epistaxis [Unknown]
  - Nasal congestion [Not Recovered/Not Resolved]
  - Wheezing [Unknown]
  - Dizziness [Unknown]
  - Contusion [Unknown]
  - Urinary tract infection [Not Recovered/Not Resolved]
  - Cystitis [Unknown]
  - Chest discomfort [Unknown]
  - Epistaxis [Unknown]
  - Hypersensitivity [Unknown]
  - Headache [Unknown]
  - Sinusitis [Not Recovered/Not Resolved]
  - Throat irritation [Unknown]

NARRATIVE: CASE EVENT DATE: 201111
